FAERS Safety Report 6822193-9 (Version None)
Quarter: 2010Q3

REPORT INFORMATION
  Report Type: 
  Country: None (occurrence: None)
  Receive Date: 20100708
  Receipt Date: 20100701
  Transmission Date: 20110219
  Serious: Yes (Other)
  Sender: FDA-Public Use
  Company Number: US-ASTRAZENECA-2007UW02368

PATIENT
  Age: 19873 Day
  Sex: Male
  Weight: 108.9 kg

DRUGS (17)
  1. SEROQUEL [Suspect]
     Indication: BORDERLINE PERSONALITY DISORDER
     Route: 048
     Dates: start: 20030805, end: 20031013
  2. SEROQUEL [Suspect]
     Indication: SLEEP DISORDER
     Route: 048
     Dates: start: 20030805, end: 20031013
  3. SEROQUEL [Suspect]
     Indication: PALPITATIONS
     Route: 048
     Dates: start: 20030805, end: 20031013
  4. SEROQUEL [Suspect]
     Route: 048
     Dates: start: 20030805
  5. SEROQUEL [Suspect]
     Route: 048
     Dates: start: 20030805
  6. SEROQUEL [Suspect]
     Route: 048
     Dates: start: 20030805
  7. SEROQUEL [Suspect]
     Dosage: 100-400 MG
     Route: 048
     Dates: start: 20031013
  8. SEROQUEL [Suspect]
     Dosage: 100-400 MG
     Route: 048
     Dates: start: 20031013
  9. SEROQUEL [Suspect]
     Dosage: 100-400 MG
     Route: 048
     Dates: start: 20031013
  10. SEROQUEL [Suspect]
     Route: 048
     Dates: start: 20061202
  11. SEROQUEL [Suspect]
     Route: 048
     Dates: start: 20061202
  12. SEROQUEL [Suspect]
     Route: 048
     Dates: start: 20061202
  13. ZYPREXA [Suspect]
     Indication: BIPOLAR DISORDER
     Dates: start: 20031013, end: 20031102
  14. GEODON [Concomitant]
     Dates: start: 20060215
  15. GEODON [Concomitant]
     Dates: start: 20040701
  16. DEPAKOTE [Concomitant]
     Dates: start: 20040812, end: 20050601
  17. HALDOL [Concomitant]
     Route: 042
     Dates: start: 20051101

REACTIONS (5)
  - BLINDNESS [None]
  - DYSLIPIDAEMIA [None]
  - HYPERTENSION [None]
  - SUICIDAL IDEATION [None]
  - TYPE 2 DIABETES MELLITUS [None]
